FAERS Safety Report 24423636 (Version 3)
Quarter: 2025Q3

REPORT INFORMATION
  Report Type: Spontaneous
  Country: JP (occurrence: JP)
  Receive Date: 20241010
  Receipt Date: 20250903
  Transmission Date: 20251020
  Serious: Yes (Other)
  Sender: ALEXION PHARMACEUTICALS
  Company Number: JP-ASTRAZENECA-240065535_013020_P_1

PATIENT
  Age: 57 Year
  Sex: Female

DRUGS (2)
  1. TAGRISSO [Suspect]
     Active Substance: OSIMERTINIB
     Dosage: 80 MILLIGRAM, QD
  2. IRESSA [Suspect]
     Active Substance: GEFITINIB
     Dosage: 250 MILLIGRAM, QD

REACTIONS (2)
  - Organising pneumonia [Recovered/Resolved]
  - Malignant neoplasm progression [Unknown]
